FAERS Safety Report 6361299-8 (Version None)
Quarter: 2009Q3

REPORT INFORMATION
  Report Type: 
  Country: None (occurrence: None)
  Receive Date: 20090918
  Receipt Date: 20090914
  Transmission Date: 20100115
  Serious: Yes (Hospitalization, Congenital Anomaly)
  Sender: FDA-Public Use
  Company Number: A0662915A

PATIENT
  Sex: Male
  Weight: 2.6 kg

DRUGS (5)
  1. PAXIL [Suspect]
     Indication: ANXIETY
     Dosage: 20MG PER DAY
     Dates: start: 20050301, end: 20050401
  2. PAROXETINE HCL [Suspect]
     Indication: ANXIETY
     Dosage: 20MG PER DAY
     Dates: start: 20050201, end: 20050301
  3. VITAMIN TAB [Concomitant]
  4. TYLENOL W/ CODEINE [Concomitant]
  5. KLONOPIN [Concomitant]

REACTIONS (7)
  - CEREBROVASCULAR ACCIDENT [None]
  - CONGENITAL AORTIC ATRESIA [None]
  - CONGENITAL CARDIOVASCULAR ANOMALY [None]
  - DRUG EXPOSURE DURING PREGNANCY [None]
  - HYPOPLASTIC LEFT HEART SYNDROME [None]
  - HYPOPLASTIC RIGHT HEART SYNDROME [None]
  - VENTRICULAR SEPTAL DEFECT [None]
